FAERS Safety Report 4811945-2 (Version None)
Quarter: 2005Q4

REPORT INFORMATION
  Report Type: 
  Country: None (occurrence: None)
  Receive Date: 20051027
  Receipt Date: 20051027
  Transmission Date: 20060501
  Serious: Yes (Hospitalization)
  Sender: FDA-Public Use
  Company Number: None

PATIENT
  Age: 47 Year
  Sex: Male

DRUGS (1)
  1. METFORMIN     500MG [Suspect]
     Indication: DIABETES MELLITUS
     Dosage: 500MG  BID   PO  (STARTING DATE UNKNOWN)
     Route: 048
     Dates: start: 20050710, end: 20050714

REACTIONS (1)
  - HEADACHE [None]
